FAERS Safety Report 8575126-1 (Version None)
Quarter: 2012Q3

REPORT INFORMATION
  Report Type: 
  Country: None (occurrence: None)
  Receive Date: 20120807
  Receipt Date: 20120727
  Transmission Date: 20120928
  Serious: Yes (Hospitalization, Disabling)
  Sender: FDA-Public Use
  Company Number: JP-NOVOPROD-355919

PATIENT
  Age: 53 Year
  Sex: Female

DRUGS (7)
  1. LANTUS [Concomitant]
     Dosage: 10 U, QD
     Route: 058
     Dates: end: 20111001
  2. MAGMITT [Concomitant]
     Dosage: 330MGX6
     Route: 048
  3. NOVORAPID CHU FLEXPEN [Suspect]
     Indication: TYPE 1 DIABETES MELLITUS
     Dosage: UNK
     Route: 058
  4. TRAZODONE HYDROCHLORIDE [Concomitant]
     Dosage: 50 MG, QD
     Route: 048
  5. UBRETID [Concomitant]
     Dosage: 2.5 MG, QD
     Route: 048
  6. LEVEMIR [Suspect]
     Indication: TYPE 1 DIABETES MELLITUS
     Dosage: UNK
     Route: 058
     Dates: start: 20110901
  7. BENZALIN                           /00036201/ [Concomitant]
     Dosage: 5 MG, QD
     Route: 048

REACTIONS (2)
  - HYPOGLYCAEMIA [None]
  - ANTI-INSULIN ANTIBODY POSITIVE [None]
